FAERS Safety Report 15258095 (Version 1)
Quarter: 2018Q3

REPORT INFORMATION
  Report Type: Spontaneous
  Country: ES (occurrence: ES)
  Receive Date: 20180809
  Receipt Date: 20180809
  Transmission Date: 20181010
  Serious: Yes (Other)
  Sender: FDA-Public Use
  Company Number: ES-DENTSPLY-2018SCDP000326

PATIENT
  Sex: Male

DRUGS (4)
  1. MEPIVACAINE HCL [Suspect]
     Active Substance: MEPIVACAINE\MEPIVACAINE HYDROCHLORIDE
     Indication: SEDATION
     Dosage: SOLUTION FOR INJECTION
  2. LIDOCAINE HCL [Suspect]
     Active Substance: LIDOCAINE HYDROCHLORIDE
     Indication: HAIR TRANSPLANT
  3. LIDOCAINE HCL [Suspect]
     Active Substance: LIDOCAINE HYDROCHLORIDE
     Indication: SEDATION
     Dosage: SOLUTION FOR INJECTION
  4. MEPIVACAINE HCL [Suspect]
     Active Substance: MEPIVACAINE\MEPIVACAINE HYDROCHLORIDE
     Indication: HAIR TRANSPLANT

REACTIONS (6)
  - Tachycardia [Unknown]
  - Agitation [Unknown]
  - Drug ineffective [Unknown]
  - Overdose [Unknown]
  - Respiratory depression [Unknown]
  - Confusional state [Unknown]
